FAERS Safety Report 25546727 (Version 3)
Quarter: 2025Q3

REPORT INFORMATION
  Report Type: Report from Study
  Country: CA (occurrence: CA)
  Receive Date: 20250714
  Receipt Date: 20250924
  Transmission Date: 20251020
  Serious: Yes (Other)
  Sender: NOVARTIS
  Company Number: CA-002147023-NVSC2025CA108536

PATIENT
  Age: 49 Year
  Sex: Male

DRUGS (2)
  1. KISQALI [Suspect]
     Active Substance: RIBOCICLIB SUCCINATE
     Indication: Breast cancer metastatic
     Dosage: 600 MG, QD (21 DAYS, OFF 7 DAYS)
     Route: 048
     Dates: start: 20250407
  2. LETROZOLE [Suspect]
     Active Substance: LETROZOLE
     Indication: Breast cancer male
     Dosage: 2.5 MG, QD
     Route: 048
     Dates: start: 20250307

REACTIONS (4)
  - Neuropathy peripheral [Recovered/Resolved]
  - Limb discomfort [Unknown]
  - Hot flush [Recovered/Resolved]
  - Hypoaesthesia [Unknown]

NARRATIVE: CASE EVENT DATE: 20250404
